FAERS Safety Report 5643155-3 (Version None)
Quarter: 2008Q1

REPORT INFORMATION
  Report Type: 
  Country: None (occurrence: None)
  Receive Date: 20080228
  Receipt Date: 20080218
  Transmission Date: 20080703
  Serious: Yes (Death, Life-Threatening, Hospitalization)
  Sender: FDA-Public Use
  Company Number: BE-WYE-G01137508

PATIENT
  Age: 58 Year
  Sex: Male
  Weight: 120 kg

DRUGS (7)
  1. RAPAMUNE [Suspect]
     Indication: PROPHYLAXIS AGAINST TRANSPLANT REJECTION
     Dosage: NOT PROVIDED
     Route: 048
     Dates: end: 20070801
  2. MEDROL [Concomitant]
     Route: 048
     Dates: end: 20070901
  3. ZANTAC 150 [Concomitant]
     Route: 048
  4. DAFALGAN [Concomitant]
     Route: 048
  5. CIPROFLOXACIN [Concomitant]
     Route: 048
  6. TACROLIMUS [Concomitant]
     Route: 048
     Dates: end: 20070920
  7. DUOVENT [Concomitant]
     Dosage: 3 INHALATIONS PER DAY
     Route: 055

REACTIONS (3)
  - ACUTE RESPIRATORY DISTRESS SYNDROME [None]
  - BRONCHOPNEUMONIA [None]
  - MULTI-ORGAN FAILURE [None]
